FAERS Safety Report 24654622 (Version 4)
Quarter: 2025Q3

REPORT INFORMATION
  Report Type: Report from Study
  Country: EU (occurrence: EU)
  Receive Date: 20241122
  Receipt Date: 20250819
  Transmission Date: 20251021
  Serious: Yes (Death, Life-Threatening, Hospitalization, Other)
  Sender: MYLAN
  Company Number: EU-JNJFOC-20241084677

PATIENT
  Age: 84 Year
  Sex: Male

DRUGS (14)
  1. LENALIDOMIDE [Suspect]
     Active Substance: LENALIDOMIDE
     Indication: Plasma cell myeloma
  2. DARATUMUMAB\HYALURONIDASE-FIHJ [Suspect]
     Active Substance: DARATUMUMAB\HYALURONIDASE-FIHJ
     Indication: Plasma cell myeloma
     Dates: start: 20241009, end: 20241009
  3. DARATUMUMAB\HYALURONIDASE-FIHJ [Suspect]
     Active Substance: DARATUMUMAB\HYALURONIDASE-FIHJ
     Dates: start: 20241016, end: 20241016
  4. DARATUMUMAB\HYALURONIDASE-FIHJ [Suspect]
     Active Substance: DARATUMUMAB\HYALURONIDASE-FIHJ
     Dates: start: 20241016, end: 20241016
  5. DEXAMETHASONE [Suspect]
     Active Substance: DEXAMETHASONE
     Indication: Plasma cell myeloma
  6. ASPIRIN [Concomitant]
     Active Substance: ASPIRIN
     Indication: Myocardial ischaemia
     Dosage: 100 MILLIGRAM, QD (DAILY)
  7. Cafinitrina [Concomitant]
     Indication: Myocardial ischaemia
     Dosage: FREQUENCY: DAILY
  8. Dermatrans [Concomitant]
     Indication: Myocardial ischaemia
     Dosage: 5 MILLIGRAM, QD (DAILY)
  9. RANEXA [Concomitant]
     Active Substance: RANOLAZINE
     Indication: Myocardial ischaemia
     Dosage: 500 MILLIGRAM, BID
  10. TORSEMIDE [Concomitant]
     Active Substance: TORSEMIDE
     Indication: Myocardial ischaemia
     Dosage: 10 MILLIGRAM, QD (DAILY)
  11. Eplerenona Normon [Concomitant]
     Indication: Myocardial ischaemia
     Dosage: 25 MILLIGRAM, QD (DAILY)
  12. LOSARTAN [Concomitant]
     Active Substance: LOSARTAN
     Indication: Hypertension
     Dosage: 100 MILLIGRAM, QD (DAILY)
  13. ATORVASTATIN CALCIUM\EZETIMIBE [Concomitant]
     Active Substance: ATORVASTATIN CALCIUM\EZETIMIBE
     Indication: Hyperlipidaemia
     Dosage: 80/10MG, (DAILY)
  14. Tamsolin [Concomitant]
     Indication: Benign prostatic hyperplasia
     Dosage: 0.4 MILLIGRAM, QD (DAILY)

REACTIONS (8)
  - Pneumonia aspiration [Fatal]
  - Plasma cell myeloma [Unknown]
  - Retinal artery occlusion [Unknown]
  - Delirium [Unknown]
  - Urinary tract infection enterococcal [Recovered/Resolved]
  - Urinary tract infection [Unknown]
  - Klebsiella bacteraemia [Unknown]
  - Pyrexia [Recovered/Resolved]

NARRATIVE: CASE EVENT DATE: 20241009
